FAERS Safety Report 7183740-3 (Version None)
Quarter: 2010Q4

REPORT INFORMATION
  Report Type: 
  Country: None (occurrence: None)
  Receive Date: 20101220
  Receipt Date: 20101220
  Transmission Date: 20110411
  Serious: Yes (Hospitalization)
  Sender: FDA-Public Use
  Company Number: None

PATIENT
  Age: 73 Year
  Sex: Male
  Weight: 95.45 kg

DRUGS (11)
  1. BACTRIM DS [Suspect]
     Indication: CELLULITIS
     Dosage: ONE BID PO  RECENT (TOOK 3 DOSES)
     Route: 048
  2. SYNTHROID [Concomitant]
  3. ASA [Concomitant]
  4. CYMBALTA [Concomitant]
  5. ZOCOR [Concomitant]
  6. LIDODERM [Concomitant]
  7. SPIRIVA [Concomitant]
  8. PERCOCET [Concomitant]
  9. MUPIROCIN [Concomitant]
  10. M.V.I. [Concomitant]
  11. VOLTAREN [Concomitant]

REACTIONS (2)
  - DRUG HYPERSENSITIVITY [None]
  - MACULE [None]
